FAERS Safety Report 7473363-0 (Version None)
Quarter: 2011Q2

REPORT INFORMATION
  Report Type: 
  Country: None (occurrence: None)
  Receive Date: 20110503
  Receipt Date: 20110418
  Transmission Date: 20111010
  Serious: Yes (Other)
  Sender: FDA-Public Use
  Company Number: 20110314

PATIENT
  Sex: Female

DRUGS (1)
  1. DEXAMETHASONE SODIUM PHOSPHATE [Suspect]
     Dosage: CC EPIDURAL
     Route: 008
     Dates: start: 20110222, end: 20110101

REACTIONS (6)
  - LOCAL REACTION [None]
  - HYPOAESTHESIA [None]
  - PARAESTHESIA [None]
  - PRODUCT QUALITY ISSUE [None]
  - IMMEDIATE POST-INJECTION REACTION [None]
  - PAIN [None]
